FAERS Safety Report 19786717 (Version 1)
Quarter: 2021Q3

REPORT INFORMATION
  Report Type: Spontaneous
  Country: SE (occurrence: SE)
  Receive Date: 20210903
  Receipt Date: 20210903
  Transmission Date: 20211014
  Serious: Yes (Hospitalization)
  Sender: FDA-Public Use
  Company Number: SE-ASTRAZENECA-2021A701508

PATIENT
  Age: 73 Year
  Sex: Male

DRUGS (7)
  1. EZETIMIB ACTAVIS [Concomitant]
     Active Substance: EZETIMIBE
     Route: 065
     Dates: start: 20210531
  2. ROSUVASTATIN. [Suspect]
     Active Substance: ROSUVASTATIN
     Dosage: UNKNOWN
     Route: 048
     Dates: end: 202107
  3. RAMIPRIL. [Concomitant]
     Active Substance: RAMIPRIL
     Dosage: UNKNOWN
     Route: 065
     Dates: end: 202107
  4. NAPROXEN. [Suspect]
     Active Substance: NAPROXEN
     Dosage: UNKNOWN
     Route: 065
     Dates: end: 202107
  5. NITROLINGUAL [Concomitant]
     Active Substance: NITROGLYCERIN
     Dosage: 1 DOS VID BEHOV
     Route: 065
  6. TROMBYL [Concomitant]
     Active Substance: ASPIRIN
     Route: 065
     Dates: start: 20210722
  7. SILDENAFIL ACCORD [Concomitant]
     Dosage: ONE ST, IF NECESSARY
     Route: 065

REACTIONS (3)
  - Rhabdomyolysis [Unknown]
  - Gastric ulcer haemorrhage [Unknown]
  - Acute kidney injury [Unknown]

NARRATIVE: CASE EVENT DATE: 20210710
